FAERS Safety Report 23447954 (Version 2)
Quarter: 2024Q1

REPORT INFORMATION
  Report Type: Spontaneous
  Country: BE (occurrence: BE)
  Receive Date: 20240126
  Receipt Date: 20240319
  Transmission Date: 20240410
  Serious: Yes (Hospitalization, Other)
  Sender: FDA-Public Use
  Company Number: BE-BIOVITRUM-2024-BE-001224

PATIENT

DRUGS (1)
  1. PEGCETACOPLAN [Suspect]
     Active Substance: PEGCETACOPLAN
     Indication: Paroxysmal nocturnal haemoglobinuria
     Dosage: ASPAVELI 1080MG/20ML, 2.00 X PER WEEK
     Route: 058

REACTIONS (2)
  - Renal impairment [Unknown]
  - Pneumonia [Not Recovered/Not Resolved]
